FAERS Safety Report 16788676 (Version 3)
Quarter: 2019Q3

REPORT INFORMATION
  Report Type: Report from Study
  Country: None (occurrence: GB)
  Receive Date: 20190910
  Receipt Date: 20190925
  Transmission Date: 20191005
  Serious: Yes (Death, Hospitalization, Other)
  Sender: FDA-Public Use
  Company Number: GB-ABBVIE-19K-167-2902758-00

PATIENT
  Sex: Female

DRUGS (1)
  1. DUODOPA [Suspect]
     Active Substance: CARBIDOPA\LEVODOPA
     Indication: PARKINSON^S DISEASE
     Dosage: 5MG/1ML 20MG/1ML, 100ML CASSETTE
     Route: 050

REACTIONS (9)
  - Parkinson^s disease [Fatal]
  - Choking [Unknown]
  - Velo-cardio-facial syndrome [Fatal]
  - Device issue [Unknown]
  - Pneumonia aspiration [Fatal]
  - Feeling abnormal [Not Recovered/Not Resolved]
  - Body mass index decreased [Unknown]
  - Dyskinesia [Not Recovered/Not Resolved]
  - On and off phenomenon [Unknown]

NARRATIVE: CASE EVENT DATE: 2019
